FAERS Safety Report 6420896-1 (Version None)
Quarter: 2009Q4

REPORT INFORMATION
  Report Type: 
  Country: None (occurrence: None)
  Receive Date: 20091030
  Receipt Date: 20091022
  Transmission Date: 20100525
  Serious: Yes (Other)
  Sender: FDA-Public Use
  Company Number: US-AMGEN-QUU370662

PATIENT
  Sex: Female

DRUGS (3)
  1. ENBREL [Suspect]
     Indication: RHEUMATOID ARTHRITIS
     Dates: start: 20090701
  2. METHOTREXATE [Concomitant]
  3. LEUCOVORIN [Concomitant]

REACTIONS (6)
  - DRUG INEFFECTIVE [None]
  - INJECTION SITE PAIN [None]
  - INJECTION SITE URTICARIA [None]
  - NAUSEA [None]
  - PRESYNCOPE [None]
  - VOMITING [None]
